FAERS Safety Report 16365266 (Version 2)
Quarter: 2019Q2

REPORT INFORMATION
  Report Type: Spontaneous
  Country: PL (occurrence: PL)
  Receive Date: 20190529
  Receipt Date: 20190613
  Transmission Date: 20190711
  Serious: Yes (Other)
  Sender: FDA-Public Use
  Company Number: PL-CELLTRION INC.-2019PL021426

PATIENT

DRUGS (1)
  1. RITUXIMAB (UNKNOWN) [Suspect]
     Active Substance: RITUXIMAB
     Indication: CHRONIC LYMPHOCYTIC LEUKAEMIA
     Route: 065

REACTIONS (7)
  - Haemorrhage [Unknown]
  - Lymphocytic infiltration [Unknown]
  - Basal cell carcinoma [Unknown]
  - Skin mass [Unknown]
  - Leukaemia cutis [Unknown]
  - Scab [Unknown]
  - Telangiectasia [Unknown]
